FAERS Safety Report 7409768-3 (Version None)
Quarter: 2011Q2

REPORT INFORMATION
  Report Type: 
  Country: None (occurrence: None)
  Receive Date: 20110412
  Receipt Date: 20110316
  Transmission Date: 20111010
  Serious: No
  Sender: FDA-Public Use
  Company Number: US-B.I. PHARMACEUTICALS,INC./RIDGEFIELD-2011-BP-09334BP

PATIENT
  Sex: Female

DRUGS (7)
  1. PRADAXA [Suspect]
     Indication: ATRIAL FIBRILLATION
     Dosage: 300 MG
     Route: 048
     Dates: start: 20110304, end: 20110311
  2. SPIRONOLACTONE [Concomitant]
  3. COLCHICINE [Concomitant]
     Indication: GOUT
  4. LANOXIN [Concomitant]
  5. VESICARE [Concomitant]
     Indication: INCONTINENCE
  6. SYNTHROID [Concomitant]
     Indication: HYPOTHYROIDISM
  7. LISINOPRIL [Concomitant]

REACTIONS (5)
  - CHEST PAIN [None]
  - DYSPHAGIA [None]
  - ODYNOPHAGIA [None]
  - FEELING HOT [None]
  - ERUCTATION [None]
